FAERS Safety Report 12286023 (Version 3)
Quarter: 2016Q4

REPORT INFORMATION
  Report Type: Spontaneous
  Country: CN (occurrence: CN)
  Receive Date: 20160420
  Receipt Date: 20161209
  Transmission Date: 20170207
  Serious: Yes (Other)
  Sender: FDA-Public Use
  Company Number: CN-SA-2016SA074491

PATIENT
  Age: 50 Year
  Sex: Female
  Weight: 77 kg

DRUGS (3)
  1. ASPIRIN. [Concomitant]
     Active Substance: ASPIRIN
     Indication: THROMBOSIS
     Route: 048
     Dates: start: 201406
  2. ATORVASTATIN [Concomitant]
     Active Substance: ATORVASTATIN
     Indication: THROMBOSIS
     Route: 048
     Dates: start: 201406
  3. PLAVIX [Suspect]
     Active Substance: CLOPIDOGREL BISULFATE
     Indication: THROMBOSIS
     Route: 048
     Dates: start: 201406

REACTIONS (4)
  - Product counterfeit [Unknown]
  - Cardiac disorder [Unknown]
  - Cardiac disorder [Recovered/Resolved]
  - Electrocardiogram ST segment elevation [Unknown]

NARRATIVE: CASE EVENT DATE: 201602
